FAERS Safety Report 7085469-9 (Version None)
Quarter: 2010Q4

REPORT INFORMATION
  Report Type: 
  Country: None (occurrence: None)
  Receive Date: 20101028
  Receipt Date: 20101013
  Transmission Date: 20110411
  Serious: Yes (Hospitalization)
  Sender: FDA-Public Use
  Company Number: 1000015829

PATIENT
  Age: 42 Year
  Sex: Female
  Weight: 87 kg

DRUGS (5)
  1. CITALOPRAM HYDROBROMIDE [Suspect]
     Dosage: ORAL, 10MG, ORAL
     Route: 048
  2. ASPIRIN [Suspect]
     Dosage: ORAL, 75 MG, ORAL
     Route: 048
  3. LAMOTRIGINE [Suspect]
     Dosage: ORAL
     Route: 048
  4. DALTEPARIN SODIUM [Suspect]
     Indication: EMBOLISM ARTERIAL
     Dosage: 212,500 IU, SUBCUTANEOUS, 17500 IU, SUBCUTANEOUS, 12500 IU, SUBCUTANEOUS
     Route: 058
  5. PROMETHAZINE [Suspect]
     Dosage: 625 MG, ORAL, 25 MG, ORAL
     Route: 048

REACTIONS (6)
  - ACTIVATED PARTIAL THROMBOPLASTIN TIME PROLONGED [None]
  - INJECTION SITE HAEMORRHAGE [None]
  - MULTIPLE DRUG OVERDOSE INTENTIONAL [None]
  - POISONING DELIBERATE [None]
  - SOMNOLENCE [None]
  - SUICIDE ATTEMPT [None]
